FAERS Safety Report 9559101 (Version 2)
Quarter: 2013Q4

REPORT INFORMATION
  Report Type: Spontaneous
  Country: US (occurrence: US)
  Receive Date: 20130927
  Receipt Date: 20131001
  Transmission Date: 20140711
  Serious: Yes (Life-Threatening)
  Sender: FDA-Public Use
  Company Number: US-009507513-1309USA011781

PATIENT
  Age: 69 Year
  Sex: Male

DRUGS (4)
  1. NASONEX [Suspect]
     Dosage: ONE SPRAY IN EACH NOSTRIL
     Route: 045
     Dates: start: 20130919, end: 201309
  2. LIPITOR [Concomitant]
  3. PROAIR (ALBUTEROL SULFATE) [Concomitant]
  4. ALBUTEROL [Concomitant]

REACTIONS (1)
  - Anaphylactic reaction [Recovered/Resolved]
